FAERS Safety Report 16724376 (Version 4)
Quarter: 2020Q1

REPORT INFORMATION
  Report Type: Report from Study
  Country: US (occurrence: US)
  Receive Date: 20190821
  Receipt Date: 20200122
  Transmission Date: 20200409
  Serious: Yes (Hospitalization)
  Sender: FDA-Public Use
  Company Number: US-EISAI MEDICAL RESEARCH-EC-2019-060783

PATIENT
  Age: 58 Year
  Sex: Female
  Weight: 90.4 kg

DRUGS (19)
  1. PRILOSEC [Concomitant]
     Active Substance: OMEPRAZOLE MAGNESIUM
  2. PREDNISONE. [Concomitant]
     Active Substance: PREDNISONE
  3. AMLODIPINE [Concomitant]
     Active Substance: AMLODIPINE BESYLATE
  4. ATIVAN [Concomitant]
     Active Substance: LORAZEPAM
  5. ZOFRAN [Concomitant]
     Active Substance: ONDANSETRON HYDROCHLORIDE
  6. COMPAZINE [Concomitant]
     Active Substance: PROCHLORPERAZINE MALEATE
  7. VITAMIN D3 [Concomitant]
     Active Substance: CHOLECALCIFEROL
  8. ONDANSETRON [Concomitant]
     Active Substance: ONDANSETRON
  9. MIRALAX [Concomitant]
     Active Substance: POLYETHYLENE GLYCOL 3350
  10. MARINOL [Concomitant]
     Active Substance: DRONABINOL
  11. DILAUDID [Concomitant]
     Active Substance: HYDROMORPHONE HYDROCHLORIDE
  12. DRISDOL [Concomitant]
     Active Substance: ERGOCALCIFEROL
  13. ERIBULIN [Suspect]
     Active Substance: ERIBULIN
     Indication: SARCOMA
     Route: 041
     Dates: start: 20190709, end: 20190827
  14. OXYCODONE [Concomitant]
     Active Substance: OXYCODONE
  15. SENNOKOT [Concomitant]
  16. KYTRIL [Concomitant]
     Active Substance: GRANISETRON HYDROCHLORIDE
  17. PEMBROLIZUMAB. [Suspect]
     Active Substance: PEMBROLIZUMAB
     Indication: SARCOMA
     Route: 041
     Dates: start: 20190709, end: 20190827
  18. ZYRTEC [Concomitant]
     Active Substance: CETIRIZINE HYDROCHLORIDE
  19. ZYPREXA [Concomitant]
     Active Substance: OLANZAPINE

REACTIONS (4)
  - Pain in extremity [Recovering/Resolving]
  - Sepsis [Recovered/Resolved]
  - Oedema peripheral [Unknown]
  - Bronchitis [Recovered/Resolved]

NARRATIVE: CASE EVENT DATE: 20190814
